FAERS Safety Report 7865127-0 (Version None)
Quarter: 2011Q4

REPORT INFORMATION
  Report Type: 
  Country: None (occurrence: None)
  Receive Date: 20111028
  Receipt Date: 20111021
  Transmission Date: 20120403
  Serious: Yes (Hospitalization, Other)
  Sender: FDA-Public Use
  Company Number: NL-AMGEN-NLDNI2011049380

PATIENT
  Age: 65 Year
  Sex: Female

DRUGS (12)
  1. DOXORUBICIN HCL [Suspect]
     Indication: BREAST CANCER
     Dosage: UNK
     Route: 042
     Dates: start: 20110617, end: 20110913
  2. LIPITOR [Concomitant]
     Dosage: 20 MG, UNK
  3. SYMBICORT [Concomitant]
  4. NEULASTA [Suspect]
     Indication: CHEMOTHERAPY
     Dosage: UNK
  5. DEXAMETHASONE [Concomitant]
  6. ONDANSETRON [Concomitant]
  7. GRANISETRON [Concomitant]
  8. VENTOLIN [Concomitant]
  9. DOCETAXEL [Suspect]
     Indication: BREAST CANCER
     Dosage: UNK
     Route: 042
     Dates: start: 20110617, end: 20110913
  10. CYCLOPHOSPHAMIDE [Suspect]
     Indication: BREAST CANCER
     Dosage: UNK
     Route: 042
     Dates: start: 20110617, end: 20110913
  11. METFORMIN HCL [Concomitant]
     Dosage: 500 MG, UNK
  12. BISOPROLOL [Concomitant]
     Dosage: 5 MG, UNK

REACTIONS (2)
  - HAEMOGLOBIN DECREASED [None]
  - FEBRILE NEUTROPENIA [None]
